FAERS Safety Report 5839073-8 (Version None)
Quarter: 2008Q3

REPORT INFORMATION
  Report Type: 
  Country: None (occurrence: None)
  Receive Date: 20080808
  Receipt Date: 20080731
  Transmission Date: 20090109
  Serious: Yes (Life-Threatening, Hospitalization)
  Sender: FDA-Public Use
  Company Number: FR-PFIZER INC-2006097429

PATIENT
  Sex: Male
  Weight: 64 kg

DRUGS (2)
  1. SU-011,248 [Suspect]
     Indication: NEOPLASM MALIGNANT
     Route: 048
     Dates: start: 20060802, end: 20060815
  2. IRINOTECAN HCL [Suspect]
     Indication: NEOPLASM MALIGNANT
     Route: 042
     Dates: start: 20060802, end: 20060802

REACTIONS (1)
  - SEPSIS [None]
